FAERS Safety Report 4660149-5 (Version None)
Quarter: 2005Q2

REPORT INFORMATION
  Report Type: 
  Country: None (occurrence: None)
  Receive Date: 20050427
  Receipt Date: 20050318
  Transmission Date: 20051028
  Serious: No
  Sender: FDA-Public Use
  Company Number: 212795

PATIENT
  Age: 25 Year
  Sex: Female

DRUGS (2)
  1. XOLAIR [Suspect]
     Dosage: 300 MG, QW
     Dates: start: 20041122
  2. ALBUTEROL (ALBUTEROL, ALBUTEROL SULFATE) [Concomitant]

REACTIONS (1)
  - HEADACHE [None]
